FAERS Safety Report 11766292 (Version 3)
Quarter: 2015Q4

REPORT INFORMATION
  Report Type: Report from Study
  Country: CA (occurrence: CA)
  Receive Date: 20151123
  Receipt Date: 20151218
  Transmission Date: 20160304
  Serious: Yes (Other)
  Sender: FDA-Public Use
  Company Number: CA-ROCHE-1469758

PATIENT
  Age: 69 Year
  Sex: Male

DRUGS (11)
  1. SOLU-MEDROL [Concomitant]
     Active Substance: METHYLPREDNISOLONE SODIUM SUCCINATE
     Indication: PREMEDICATION
     Route: 042
     Dates: start: 20141230
  2. PREDNISONE. [Concomitant]
     Active Substance: PREDNISONE
  3. ACTEMRA [Suspect]
     Active Substance: TOCILIZUMAB
     Indication: RHEUMATOID ARTHRITIS
     Route: 042
     Dates: start: 20140612, end: 20141002
  4. LOSARTAN. [Concomitant]
     Active Substance: LOSARTAN
  5. RITUXAN [Suspect]
     Active Substance: RITUXIMAB
     Indication: RHEUMATOID ARTHRITIS
     Route: 042
     Dates: start: 20141230
  6. SULFASALAZINE. [Concomitant]
     Active Substance: SULFASALAZINE
  7. TYLENOL [Concomitant]
     Active Substance: ACETAMINOPHEN
     Indication: PREMEDICATION
     Route: 048
     Dates: start: 20141230
  8. BENADRYL [Concomitant]
     Active Substance: DIPHENHYDRAMINE HYDROCHLORIDE
     Indication: PREMEDICATION
     Route: 048
     Dates: start: 20141230
  9. CORTISONE [Concomitant]
     Active Substance: CORTISONE\HYDROCORTISONE
  10. METHOTREXATE [Concomitant]
     Active Substance: METHOTREXATE
  11. METFORMIN [Concomitant]
     Active Substance: METFORMIN HYDROCHLORIDE

REACTIONS (6)
  - Infusion related reaction [Unknown]
  - Diabetes mellitus [Not Recovered/Not Resolved]
  - Oxygen saturation decreased [Unknown]
  - Hypertension [Not Recovered/Not Resolved]
  - Blood pressure increased [Unknown]
  - Infusion related reaction [Unknown]

NARRATIVE: CASE EVENT DATE: 20141002
